FAERS Safety Report 11006232 (Version 1)
Quarter: 2015Q2

REPORT INFORMATION
  Report Type: Spontaneous
  Country: US (occurrence: US)
  Receive Date: 20150409
  Receipt Date: 20150409
  Transmission Date: 20150821
  Serious: No
  Sender: FDA-Public Use
  Company Number: US-ELI_LILLY_AND_COMPANY-US201503009152

PATIENT
  Age: 66 Year
  Sex: Female

DRUGS (1)
  1. FORTEO [Suspect]
     Active Substance: TERIPARATIDE
     Indication: HYPOPARATHYROIDISM
     Dosage: UNK, QD
     Route: 065
     Dates: start: 20070819, end: 2009

REACTIONS (4)
  - Back pain [Unknown]
  - Osteopenia [Unknown]
  - Feeling abnormal [Unknown]
  - Dysphonia [Unknown]

NARRATIVE: CASE EVENT DATE: 2009
